FAERS Safety Report 16914090 (Version 2)
Quarter: 2019Q4

REPORT INFORMATION
  Report Type: Spontaneous
  Country: US (occurrence: US)
  Receive Date: 20191014
  Receipt Date: 20191202
  Transmission Date: 20200122
  Serious: No
  Sender: FDA-Public Use
  Company Number: US-PFIZER INC-2019439517

PATIENT
  Age: 71 Year
  Sex: Female
  Weight: 56.69 kg

DRUGS (4)
  1. IBRANCE [Suspect]
     Active Substance: PALBOCICLIB
     Indication: BREAST CANCER METASTATIC
     Dosage: 125 MG, 1X/DAY
     Dates: start: 20190621, end: 20191001
  2. IBRANCE [Suspect]
     Active Substance: PALBOCICLIB
     Dosage: 100 MG, 1X/DAY
     Dates: start: 20191009
  3. FASLODEX [Concomitant]
     Active Substance: FULVESTRANT
     Dosage: UNK, MONTHLY
     Dates: start: 201906
  4. PROLIA [Concomitant]
     Active Substance: DENOSUMAB
     Dosage: UNK, (6 MOS)
     Dates: start: 201709

REACTIONS (1)
  - Blood count abnormal [Recovered/Resolved]

NARRATIVE: CASE EVENT DATE: 20190621
